FAERS Safety Report 10181173 (Version 2)
Quarter: 2014Q2

REPORT INFORMATION
  Report Type: Spontaneous
  Country: US (occurrence: US)
  Receive Date: 20140519
  Receipt Date: 20140519
  Transmission Date: 20141212
  Serious: No
  Sender: FDA-Public Use
  Company Number: US-AMGEN INC.-USASP2014020874

PATIENT
  Age: 66 Year
  Sex: Female

DRUGS (1)
  1. PROLIA [Suspect]
     Indication: OSTEOPOROSIS POSTMENOPAUSAL
     Dosage: UNK
     Route: 065
     Dates: start: 2013

REACTIONS (15)
  - Tremor [Unknown]
  - Paraesthesia [Unknown]
  - Intervertebral disc protrusion [Unknown]
  - Temporomandibular joint syndrome [Unknown]
  - Pain [Unknown]
  - Ear pain [Unknown]
  - Nausea [Unknown]
  - Pain in jaw [Unknown]
  - Chills [Unknown]
  - Rash erythematous [Unknown]
  - Knee deformity [Unknown]
  - Muscle spasms [Unknown]
  - Myalgia [Unknown]
  - Back pain [Unknown]
  - Pain in extremity [Unknown]
